FAERS Safety Report 12411358 (Version 1)
Quarter: 2016Q2

REPORT INFORMATION
  Report Type: Spontaneous
  Country: US (occurrence: None)
  Receive Date: 20160526
  Receipt Date: 20160526
  Transmission Date: 20160815
  Serious: Yes (Other)
  Sender: FDA-Public Use
  Company Number: None

PATIENT
  Age: 28 Year
  Sex: Female
  Weight: 62.14 kg

DRUGS (1)
  1. LURASIDONE, 20MG [Suspect]
     Active Substance: LURASIDONE
     Indication: BIPOLAR DISORDER
     Route: 048
     Dates: start: 20160511, end: 20160525

REACTIONS (2)
  - Rash macular [None]
  - Rash erythematous [None]

NARRATIVE: CASE EVENT DATE: 20160525
